FAERS Safety Report 7125296-7 (Version None)
Quarter: 2010Q4

REPORT INFORMATION
  Report Type: 
  Country: None (occurrence: None)
  Receive Date: 20101129
  Receipt Date: 20101122
  Transmission Date: 20110411
  Serious: Yes (Other)
  Sender: FDA-Public Use
  Company Number: US-ROXANE LABORATORIES, INC.-2010-RO-01527RO

PATIENT
  Age: 32 Year
  Sex: Female

DRUGS (2)
  1. AZATHIOPRINE [Suspect]
     Indication: CROHN'S DISEASE
     Dosage: 200 MG
  2. ALLOPURINOL [Suspect]
     Indication: CROHN'S DISEASE
     Dosage: 100 MG

REACTIONS (2)
  - LEUKOPENIA [None]
  - MENINGITIS VIRAL [None]
